FAERS Safety Report 6272785-3 (Version None)
Quarter: 2009Q3

REPORT INFORMATION
  Report Type: 
  Country: None (occurrence: None)
  Receive Date: 20090717
  Receipt Date: 20090709
  Transmission Date: 20100115
  Serious: Yes (Death, Hospitalization, Other)
  Sender: FDA-Public Use
  Company Number: DE-ABBOTT-09P-062-0584344-00

PATIENT
  Age: 65 Year
  Sex: Male
  Weight: 74 kg

DRUGS (4)
  1. KLACID [Suspect]
     Indication: PYREXIA
     Dosage: 250 MG ONCE
     Route: 048
     Dates: start: 20080303, end: 20080303
  2. KLACID [Suspect]
     Route: 048
     Dates: start: 20080304, end: 20080304
  3. AVELOX [Concomitant]
     Indication: PYREXIA
     Dosage: 400 MG OD
     Route: 048
     Dates: start: 20080229, end: 20080302
  4. AMPICILLIN AND SULBACTAM [Concomitant]
     Indication: PYREXIA
     Dosage: UNK.
     Dates: start: 20080303, end: 20080304

REACTIONS (10)
  - ARTERIOSCLEROSIS [None]
  - ARTERIOSCLEROSIS CORONARY ARTERY [None]
  - CORONARY ARTERY DISEASE [None]
  - ELECTROCARDIOGRAM QT PROLONGED [None]
  - EMPHYSEMA [None]
  - IDIOPATHIC THROMBOCYTOPENIC PURPURA [None]
  - LONG QT SYNDROME [None]
  - MYOCARDIAL INFARCTION [None]
  - PNEUMONIA [None]
  - PULMONARY HYPERTENSION [None]
